FAERS Safety Report 16388792 (Version 1)
Quarter: 2019Q2

REPORT INFORMATION
  Report Type: Spontaneous
  Country: US (occurrence: US)
  Receive Date: 20190604
  Receipt Date: 20190604
  Transmission Date: 20190711
  Serious: No
  Sender: FDA-Public Use
  Company Number: US-TEVA-2019-US-1048668

PATIENT
  Sex: Female

DRUGS (2)
  1. DESVENLAFAXINE SODIUM [Suspect]
     Active Substance: DESVENLAFAXINE
     Indication: DEPRESSION
     Route: 065
  2. DESVENLAFAXINE SODIUM [Suspect]
     Active Substance: DESVENLAFAXINE
     Route: 065
     Dates: start: 201902

REACTIONS (6)
  - Vomiting [Unknown]
  - Hypoacusis [Unknown]
  - Amnesia [Unknown]
  - Diarrhoea [Unknown]
  - Crying [Unknown]
  - Mania [Unknown]

NARRATIVE: CASE EVENT DATE: 201902
